FAERS Safety Report 6482612-7 (Version None)
Quarter: 2009Q4

REPORT INFORMATION
  Report Type: 
  Country: None (occurrence: None)
  Receive Date: 20091209
  Receipt Date: 20091127
  Transmission Date: 20100525
  Serious: Yes (Other)
  Sender: FDA-Public Use
  Company Number: AU-RANBAXY-2009US-27318

PATIENT

DRUGS (3)
  1. TYLENOL (CAPLET) [Suspect]
     Indication: PYREXIA
     Dosage: 80-320 MG/DAY
     Route: 065
  2. TYLENOL (CAPLET) [Suspect]
     Dosage: 1 TO 2 GM DAILY
  3. TYLENOL (CAPLET) [Suspect]
     Dosage: 2 G DAILY

REACTIONS (14)
  - ACUTE HEPATIC FAILURE [None]
  - BLOOD GLUCOSE DECREASED [None]
  - BLOOD PRESSURE INCREASED [None]
  - BLOOD SODIUM DECREASED [None]
  - CARDIAC MURMUR [None]
  - COAGULOPATHY [None]
  - DECREASED APPETITE [None]
  - DRUG TOXICITY [None]
  - ENCEPHALOPATHY [None]
  - HAEMATURIA [None]
  - HEPATOMEGALY [None]
  - LEUKOCYTURIA [None]
  - LIVER INJURY [None]
  - URINE KETONE BODY ABSENT [None]
